FAERS Safety Report 6527897-3 (Version None)
Quarter: 2010Q1

REPORT INFORMATION
  Report Type: 
  Country: None (occurrence: None)
  Receive Date: 20100106
  Receipt Date: 20091228
  Transmission Date: 20100710
  Serious: Yes (Hospitalization)
  Sender: FDA-Public Use
  Company Number: FR-ASTRAZENECA-2009SE20881

PATIENT
  Age: 37 Year
  Sex: Female

DRUGS (6)
  1. MOPRAL [Suspect]
     Indication: PROPHYLAXIS AGAINST GASTROINTESTINAL ULCER
     Route: 048
     Dates: end: 20091004
  2. MUTAGRIP [Suspect]
     Indication: ANTIVIRAL PROPHYLAXIS
     Route: 058
     Dates: start: 20091005, end: 20091005
  3. LAROXYL [Suspect]
     Indication: ANXIETY
     Dosage: 15 DROPS / DAY
     Route: 048
     Dates: start: 20090901
  4. PROZAC [Suspect]
     Indication: ANXIETY
     Route: 048
     Dates: start: 20090901
  5. CIALIS [Suspect]
     Indication: PROPHYLAXIS
     Route: 048
  6. BI PROFENID [Suspect]
     Indication: MIGRAINE
     Route: 048
     Dates: end: 20091024

REACTIONS (1)
  - CONVULSION [None]
